FAERS Safety Report 16503670 (Version 1)
Quarter: 2019Q3

REPORT INFORMATION
  Report Type: Spontaneous
  Country: DE (occurrence: DE)
  Receive Date: 20190701
  Receipt Date: 20190701
  Transmission Date: 20191004
  Serious: Yes (Other)
  Sender: FDA-Public Use
  Company Number: PHHY2019DE146622

PATIENT
  Age: 38 Year
  Sex: Female

DRUGS (2)
  1. LEVETIRACETAM. [Suspect]
     Active Substance: LEVETIRACETAM
     Indication: EPILEPSY
     Dosage: 1000 MG, QD (500 MG, 2X/DAY (BID))
     Route: 048
  2. LEVETIRACETAM. [Suspect]
     Active Substance: LEVETIRACETAM
     Dosage: 1500 MG, QD (750 MG, 2X/DAY (BID))
     Route: 048

REACTIONS (4)
  - Maternal exposure during pregnancy [Unknown]
  - Stillbirth [Unknown]
  - Anticonvulsant drug level decreased [Unknown]
  - Affect lability [Unknown]
